FAERS Safety Report 14597699 (Version 1)
Quarter: 2018Q1

REPORT INFORMATION
  Report Type: Spontaneous
  Country: US (occurrence: US)
  Receive Date: 20180302
  Receipt Date: 20180302
  Transmission Date: 20180509
  Serious: No
  Sender: FDA-Public Use
  Company Number: None

PATIENT
  Age: 70 Year
  Sex: Female

DRUGS (1)
  1. INTRON A [Suspect]
     Active Substance: INTERFERON ALFA-2B

REACTIONS (5)
  - Weight decreased [None]
  - Pruritus [None]
  - Decreased appetite [None]
  - Skin disorder [None]
  - Scratch [None]

NARRATIVE: CASE EVENT DATE: 20180301
